FAERS Safety Report 9349275 (Version 3)
Quarter: 2013Q4

REPORT INFORMATION
  Report Type: Spontaneous
  Country: JP (occurrence: JP)
  Receive Date: 20130614
  Receipt Date: 20131007
  Transmission Date: 20140711
  Serious: Yes (Death)
  Sender: FDA-Public Use
  Company Number: JP-SANOFI-AVENTIS-2013SA058509

PATIENT
  Age: 66 Year
  Sex: Male
  Weight: 45.9 kg

DRUGS (6)
  1. ONETAXOTERE [Suspect]
     Indication: NASOPHARYNGEAL CANCER
     Dosage: 80 MG/BODY/DOSE
     Route: 042
     Dates: start: 20130515, end: 20130515
  2. CISPLATIN [Suspect]
     Indication: NASOPHARYNGEAL CANCER
     Dosage: 80MG/BODY/DOSE
     Route: 042
     Dates: start: 20130518, end: 20130518
  3. ZOFRAN [Concomitant]
     Route: 065
  4. DECADRON [Concomitant]
     Route: 065
  5. GASTER [Concomitant]
  6. PRIMPERAN [Concomitant]
     Route: 065

REACTIONS (7)
  - Bone marrow failure [Fatal]
  - Platelet count decreased [Fatal]
  - Pyrexia [Fatal]
  - Pneumonia [Fatal]
  - Respiratory disorder [Fatal]
  - Sepsis [Fatal]
  - Acute respiratory distress syndrome [Fatal]
